FAERS Safety Report 11709782 (Version 2)
Quarter: 2015Q4

REPORT INFORMATION
  Report Type: Spontaneous
  Country: US (occurrence: US)
  Receive Date: 20151104
  Receipt Date: 20151110
  Transmission Date: 20160304
  Serious: No
  Sender: FDA-Public Use
  Company Number: US-ELI_LILLY_AND_COMPANY-US201109000810

PATIENT
  Sex: Female

DRUGS (1)
  1. FORTEO [Suspect]
     Active Substance: TERIPARATIDE
     Indication: OSTEOPOROSIS
     Dosage: 20 UG, QD

REACTIONS (10)
  - Upper limb fracture [Unknown]
  - Pain in extremity [Unknown]
  - Hand deformity [Unknown]
  - Bone density abnormal [Unknown]
  - Emotional distress [Unknown]
  - Blood test abnormal [Unknown]
  - Lactose intolerance [Unknown]
  - Malaise [Unknown]
  - Anaemia [Unknown]
  - Osteoporosis [Unknown]
